FAERS Safety Report 4445588-X (Version None)
Quarter: 2004Q3

REPORT INFORMATION
  Report Type: 
  Country: None (occurrence: None)
  Receive Date: 20040802
  Receipt Date: 20040507
  Transmission Date: 20050211
  Serious: No
  Sender: FDA-Public Use
  Company Number: 2004-116952-NL

PATIENT
  Age: 26 Year
  Sex: Female
  Weight: 65.9 kg

DRUGS (1)
  1. NUVARING [Suspect]
     Indication: CONTRACEPTION
     Dosage: DF DAILY VAGINAL
     Route: 067
     Dates: start: 20040430

REACTIONS (2)
  - GENITAL PRURITUS FEMALE [None]
  - KERATOCONJUNCTIVITIS SICCA [None]
